FAERS Safety Report 9891515 (Version 1)
Quarter: 2014Q1

REPORT INFORMATION
  Report Type: Spontaneous
  Country: US (occurrence: US)
  Receive Date: 20140212
  Receipt Date: 20140212
  Transmission Date: 20141002
  Serious: No
  Sender: FDA-Public Use
  Company Number: US-THROMBOGENICS INC-JET-2013-330

PATIENT
  Sex: Female

DRUGS (1)
  1. JETREA [Suspect]
     Indication: MACULAR HOLE
     Dosage: 0.125 MG, ONE TIME DOSE
     Route: 031
     Dates: start: 20131021, end: 20131021

REACTIONS (3)
  - Eye swelling [Not Recovered/Not Resolved]
  - Ophthalmological examination abnormal [Unknown]
  - Off label use [Unknown]
